FAERS Safety Report 23005002 (Version 2)
Quarter: 2023Q4

REPORT INFORMATION
  Report Type: Spontaneous
  Country: PK (occurrence: PK)
  Receive Date: 20230929
  Receipt Date: 20231011
  Transmission Date: 20240110
  Serious: Yes (Other)
  Sender: FDA-Public Use
  Company Number: PK-PFIZER INC-PV202300161157

PATIENT
  Age: 26 Year
  Sex: Female

DRUGS (6)
  1. ENBREL [Suspect]
     Active Substance: ETANERCEPT
     Indication: Arthritis
     Dosage: 50 MG, WEEKLY
     Route: 058
     Dates: start: 202307
  2. METHOTREXATE [Concomitant]
     Active Substance: METHOTREXATE
     Dosage: 1.5 TAB ON THURSDAY
  3. FOLIC ACID [Concomitant]
     Active Substance: FOLIC ACID
     Dosage: 1 TAB ON WEDNESDAY
  4. Rapicort [Concomitant]
     Dosage: 1 TAB IN MORNING AFTER 10 DAYS HALF TABLET DAILY MORNING
  5. PIROXICAM BETADEX [Concomitant]
     Active Substance: PIROXICAM BETADEX
     Dosage: MORNING
  6. ESSO [Concomitant]
     Indication: Abdominal discomfort
     Dosage: 1 DAILY

REACTIONS (3)
  - Bone marrow oedema [Unknown]
  - C-reactive protein increased [Unknown]
  - Red blood cell sedimentation rate increased [Unknown]
